FAERS Safety Report 17759719 (Version 1)
Quarter: 2020Q2

REPORT INFORMATION
  Report Type: Spontaneous
  Country: DK (occurrence: DK)
  Receive Date: 20200508
  Receipt Date: 20200508
  Transmission Date: 20200714
  Serious: Yes (Other)
  Sender: FDA-Public Use
  Company Number: NVSC2020DK123676

PATIENT
  Age: 61 Year
  Sex: Male

DRUGS (3)
  1. HYDROCHLOROTHIAZIDE,LOSARTAN [Suspect]
     Active Substance: HYDROCHLOROTHIAZIDE\LOSARTAN
     Indication: HYPERTENSION
     Dosage: 1 DF, QD (100+25 MG)
     Route: 048
     Dates: start: 20120413
  2. HYDROCHLOROTHIAZIDE,LOSARTAN [Suspect]
     Active Substance: HYDROCHLOROTHIAZIDE\LOSARTAN
     Dosage: 1 DF, QD (100+25 MG)
     Route: 048
     Dates: start: 20181214
  3. ATORVASTATIN [Concomitant]
     Active Substance: ATORVASTATIN
     Indication: HYPERCHOLESTEROLAEMIA
     Dosage: 40 MG, QD
     Route: 048

REACTIONS (3)
  - Skin cancer [Unknown]
  - Precancerous skin lesion [Recovered/Resolved]
  - Actinic keratosis [Not Recovered/Not Resolved]

NARRATIVE: CASE EVENT DATE: 2017
